FAERS Safety Report 10725849 (Version 1)
Quarter: 2015Q1

REPORT INFORMATION
  Report Type: Spontaneous
  Country: TR (occurrence: None)
  Receive Date: 20150116
  Receipt Date: 20150116
  Transmission Date: 20150721
  Serious: Yes (Death, Hospitalization)
  Sender: FDA-Public Use
  Company Number: TR-ZYDUS-006372

PATIENT
  Age: 71 Year
  Sex: Male

DRUGS (2)
  1. LEVODOPA (LEVODOPA) [Suspect]
     Active Substance: LEVODOPA
     Indication: PARKINSON^S DISEASE
     Dosage: 1.0 DAYS
  2. PRAMIPEXOLE (PRAMIPEXOLE) [Suspect]
     Active Substance: PRAMIPEXOLE
     Indication: PARKINSON^S DISEASE
     Dosage: 1.0 DAYS

REACTIONS (5)
  - Neck injury [None]
  - Loss of consciousness [None]
  - Head injury [None]
  - Stereotypy [None]
  - Impulse-control disorder [None]
